FAERS Safety Report 4622046-0 (Version None)
Quarter: 2005Q1

REPORT INFORMATION
  Report Type: 
  Country: None (occurrence: None)
  Receive Date: 20050328
  Receipt Date: 20050316
  Transmission Date: 20050727
  Serious: Yes (Hospitalization)
  Sender: FDA-Public Use
  Company Number: 213152

PATIENT
  Age: 58 Year
  Sex: Male
  Weight: 102 kg

DRUGS (10)
  1. RITUXAN [Suspect]
     Indication: CENTRAL NERVOUS SYSTEM LYMPHOMA
     Dosage: 25 MG, INTRATHECAL
     Route: 037
     Dates: start: 20041218
  2. DECADRON [Concomitant]
  3. GLIPIZIDE XL (GLIPIZIDE) [Concomitant]
  4. CITALOPRAM (CITALOPRAM) [Concomitant]
  5. INSULIN SS (INSULIN) [Concomitant]
  6. LOVENOX (ENOXAPAIRIN SODIUM) [Concomitant]
  7. CLOTRIMAZOLE TROCHES (CLOTRIMAZOLE) [Concomitant]
  8. MORPHINE SULFATE [Concomitant]
  9. COLACE (DOCUSATE SODIUM) [Concomitant]
  10. SENNA (SENNA) [Concomitant]

REACTIONS (1)
  - MENINGITIS STAPHYLOCOCCAL [None]
